FAERS Safety Report 15377774 (Version 4)
Quarter: 2018Q4

REPORT INFORMATION
  Report Type: Spontaneous
  Country: US (occurrence: US)
  Receive Date: 20180913
  Receipt Date: 20181210
  Transmission Date: 20190204
  Serious: Yes (Hospitalization, Other)
  Sender: FDA-Public Use
  Company Number: US-SA-2018SA248619

PATIENT
  Age: 73 Year
  Sex: Female
  Weight: 68 kg

DRUGS (14)
  1. PRALUENT [Suspect]
     Active Substance: ALIROCUMAB
     Indication: HYPERLIPIDAEMIA
     Dosage: 75 MG, QOW
     Route: 058
     Dates: start: 201808
  2. MULTIVITAMINS [VITAMINS NOS] [Concomitant]
     Active Substance: VITAMINS
  3. BENAZEPRIL HYDROCHLOROTHIAZIDE EG [Concomitant]
  4. VENTOLIN HFA [Concomitant]
     Active Substance: ALBUTEROL SULFATE
  5. ASPIRIN 81 [Concomitant]
     Active Substance: ASPIRIN
  6. PROTONIX [OMEPRAZOLE] [Concomitant]
  7. PLAVIX PLUS [Concomitant]
     Active Substance: ASPIRIN\CLOPIDOGREL
  8. ALIROCUMAB PREFILLED PEN [Suspect]
     Active Substance: ALIROCUMAB
     Indication: HYPERLIPIDAEMIA
     Dosage: UNK
     Route: 058
     Dates: start: 201808
  9. SPIRIVA [Concomitant]
     Active Substance: TIOTROPIUM BROMIDE MONOHYDRATE
  10. SYMBICORT [Concomitant]
     Active Substance: BUDESONIDE\FORMOTEROL FUMARATE DIHYDRATE
  11. VITAMIN B12 [Concomitant]
     Active Substance: CYANOCOBALAMIN
  12. COENZYME Q10 [Concomitant]
     Active Substance: UBIDECARENONE
  13. VITAMIN C [Concomitant]
     Active Substance: ASCORBIC ACID
  14. PROBIOTIC 10 [Concomitant]

REACTIONS (9)
  - Dyspnoea [Unknown]
  - Animal scratch [Recovered/Resolved]
  - Peripheral swelling [Recovered/Resolved]
  - Blood pressure decreased [Unknown]
  - Pruritus [Recovered/Resolved]
  - Injection site pain [Unknown]
  - Transcatheter aortic valve implantation [Recovered/Resolved]
  - Fatigue [Unknown]
  - Rhinorrhoea [Unknown]

NARRATIVE: CASE EVENT DATE: 201811
